FAERS Safety Report 10575178 (Version 2)
Quarter: 2014Q4

REPORT INFORMATION
  Report Type: Spontaneous
  Country: JP (occurrence: JP)
  Receive Date: 20141111
  Receipt Date: 20141111
  Transmission Date: 20150529
  Serious: Yes (Death, Disabling, Other)
  Sender: FDA-Public Use
  Company Number: JP-BRISTOL-MYERS SQUIBB COMPANY-20117792

PATIENT
  Age: 77 Year
  Sex: Female
  Weight: 42 kg

DRUGS (1)
  1. ERBITUX [Suspect]
     Active Substance: CETUXIMAB
     Indication: SALIVARY GLAND CANCER
     Dosage: 347MG?556MG 1/1WK
     Route: 041
     Dates: start: 20131204, end: 20140115

REACTIONS (3)
  - Altered state of consciousness [Unknown]
  - Interstitial lung disease [Fatal]
  - Rash [Not Recovered/Not Resolved]

NARRATIVE: CASE EVENT DATE: 20131225
